FAERS Safety Report 7513881-X (Version None)
Quarter: 2011Q2

REPORT INFORMATION
  Report Type: 
  Country: None (occurrence: None)
  Receive Date: 20110531
  Receipt Date: 20110517
  Transmission Date: 20111010
  Serious: Yes (Hospitalization, Other)
  Sender: FDA-Public Use
  Company Number: PHHY2011US42638

PATIENT
  Age: 60 Year
  Sex: Male
  Weight: 77 kg

DRUGS (4)
  1. ANTICOAGULANTS [Concomitant]
  2. AZATHIOPRINE [Concomitant]
     Indication: HEART TRANSPLANT
  3. PREDNISONE [Concomitant]
     Indication: HEART TRANSPLANT
  4. CYCLOSPORINE [Suspect]
     Indication: HEART TRANSPLANT

REACTIONS (9)
  - EJECTION FRACTION ABNORMAL [None]
  - FLUID OVERLOAD [None]
  - CARDIAC FAILURE [None]
  - RENAL FAILURE [None]
  - COMPLICATIONS OF TRANSPLANTED HEART [None]
  - PULMONARY OEDEMA [None]
  - CARDIAC MURMUR [None]
  - AORTIC VALVE INCOMPETENCE [None]
  - MITRAL VALVE INCOMPETENCE [None]
